FAERS Safety Report 8830124 (Version 1)
Quarter: 2012Q4

REPORT INFORMATION
  Report Type: 
  Country: US (occurrence: US)
  Receive Date: 20121008
  Receipt Date: 20121008
  Transmission Date: 20130627
  Serious: No
  Sender: FDA-Public Use
  Company Number: US-VERTEX PHARMACEUTICAL INC.-2012-021687

PATIENT
  Age: 55 Year
  Sex: Female
  Weight: 64 kg

DRUGS (7)
  1. INCIVEK [Suspect]
     Indication: HEPATITIS C
     Dosage: 750 mg, tid
     Route: 048
     Dates: start: 20120915
  2. RIBASPHERE [Suspect]
     Indication: HEPATITIS C
     Dosage: 1000 mg, bid
     Route: 048
     Dates: start: 20120915
  3. PEGASYS [Suspect]
     Indication: HEPATITIS C
     Dosage: 180 ?g, UNK
     Route: 058
     Dates: start: 20120915
  4. PAXIL [Concomitant]
     Indication: DEPRESSION
     Dosage: UNK
     Route: 048
  5. SOMA [Concomitant]
     Indication: MUSCLE SPASMS
     Dosage: UNK, qd
     Route: 048
  6. HYDROCODONE [Concomitant]
     Indication: BACK PAIN
     Dosage: UNK, prn
     Route: 048
  7. FIORICET [Concomitant]
     Indication: MIGRAINE
     Dosage: UNK, prn
     Route: 048

REACTIONS (3)
  - Dyspepsia [Not Recovered/Not Resolved]
  - Pruritus [Not Recovered/Not Resolved]
  - Nausea [Recovered/Resolved]
